FAERS Safety Report 9101003 (Version 1)
Quarter: 2013Q1

REPORT INFORMATION
  Report Type: Spontaneous
  Country: DE (occurrence: DE)
  Receive Date: 20130214
  Receipt Date: 20130214
  Transmission Date: 20140127
  Serious: Yes (Other)
  Sender: FDA-Public Use
  Company Number: DE-UCBSA-052452

PATIENT
  Sex: Female
  Weight: 80 kg

DRUGS (2)
  1. KEPPRA [Suspect]
     Indication: EPILEPSY
     Route: 048
     Dates: start: 20090317, end: 2011
  2. LEVETIRACETAM UCB [Suspect]
     Indication: EPILEPSY
     Route: 048
     Dates: start: 20110701

REACTIONS (2)
  - Premature delivery [Recovered/Resolved]
  - Pregnancy [Recovered/Resolved]
